FAERS Safety Report 5704383-1 (Version None)
Quarter: 2008Q2

REPORT INFORMATION
  Report Type: 
  Country: None (occurrence: None)
  Receive Date: 20080414
  Receipt Date: 20080403
  Transmission Date: 20081010
  Serious: Yes (Death, Hospitalization)
  Sender: FDA-Public Use
  Company Number: A0722436A

PATIENT
  Age: 19 Year
  Sex: Female

DRUGS (1)
  1. ADVAIR HFA [Suspect]
     Indication: DRUG USE FOR UNKNOWN INDICATION

REACTIONS (4)
  - CARDIAC ARREST [None]
  - PULMONARY EMBOLISM [None]
  - RESPIRATORY FAILURE [None]
  - STATUS ASTHMATICUS [None]
